FAERS Safety Report 4726881-X (Version None)
Quarter: 2005Q3

REPORT INFORMATION
  Report Type: 
  Country: None (occurrence: None)
  Receive Date: 20050727
  Receipt Date: 20050727
  Transmission Date: 20060218
  Serious: Yes (Other)
  Sender: FDA-Public Use
  Company Number: None

PATIENT
  Age: 81 Year
  Sex: Female
  Weight: 58.9676 kg

DRUGS (3)
  1. FOSAMAX [Suspect]
     Indication: OSTEOPOROSIS PROPHYLAXIS
     Dosage: 70 MG ONCE A WEEK
     Dates: start: 20000101, end: 20050717
  2. PHENOBARBITAL [Concomitant]
  3. ONE A DAY VITAMIN [Concomitant]

REACTIONS (2)
  - FEELING ABNORMAL [None]
  - HYPOAESTHESIA ORAL [None]
